FAERS Safety Report 12278443 (Version 1)
Quarter: 2016Q2

REPORT INFORMATION
  Report Type: Spontaneous
  Country: US (occurrence: US)
  Receive Date: 20160418
  Receipt Date: 20160418
  Transmission Date: 20160815
  Serious: No
  Sender: FDA-Public Use
  Company Number: US-MDT-ADR-2016-00669

PATIENT
  Age: 35 Year
  Sex: Male

DRUGS (19)
  1. APAP [Suspect]
     Active Substance: ACETAMINOPHEN
  2. FOSAMAX [Suspect]
     Active Substance: ALENDRONATE SODIUM
  3. ESOMEPRAZOLE [Suspect]
     Active Substance: ESOMEPRAZOLE
  4. BISCODYL [Suspect]
     Active Substance: BISACODYL
  5. BACLOFEN. [Suspect]
     Active Substance: BACLOFEN
     Dosage: 1014 MCG/DAY
     Route: 037
  6. BACLOFEN. [Suspect]
     Active Substance: BACLOFEN
     Route: 048
  7. FUROSEMIDE. [Suspect]
     Active Substance: FUROSEMIDE
  8. VITAMIN D [Suspect]
     Active Substance: CHOLECALCIFEROL
  9. AMOXICILLIN. [Suspect]
     Active Substance: AMOXICILLIN
  10. FLUTICASONE [Suspect]
     Active Substance: FLUTICASONE\FLUTICASONE PROPIONATE
  11. LORAZEPAM. [Suspect]
     Active Substance: LORAZEPAM
  12. VITAMIN C [Suspect]
     Active Substance: ASCORBIC ACID
  13. LORATADINE. [Suspect]
     Active Substance: LORATADINE
  14. SENOKOT [Suspect]
     Active Substance: SENNOSIDES
  15. GABAPENTIN. [Suspect]
     Active Substance: GABAPENTIN
  16. XARELTO [Suspect]
     Active Substance: RIVAROXABAN
  17. CALCIUM [Suspect]
     Active Substance: CALCIUM
  18. TRAZODONE [Suspect]
     Active Substance: TRAZODONE HYDROCHLORIDE
  19. OXYBUTYNIN [Suspect]
     Active Substance: OXYBUTYNIN

REACTIONS (1)
  - Muscle spasticity [Not Recovered/Not Resolved]
